FAERS Safety Report 5551265-4 (Version None)
Quarter: 2007Q4

REPORT INFORMATION
  Report Type: 
  Country: None (occurrence: None)
  Receive Date: 20071210
  Receipt Date: 20071126
  Transmission Date: 20080405
  Serious: Yes (Other)
  Sender: FDA-Public Use
  Company Number: 2007EU002628

PATIENT
  Age: 21 Year
  Sex: Female

DRUGS (1)
  1. PROTOPIC [Suspect]
     Dosage: TOPICAL
     Route: 061

REACTIONS (1)
  - HODGKIN'S DISEASE [None]
